FAERS Safety Report 24110362 (Version 1)
Quarter: 2024Q3

REPORT INFORMATION
  Report Type: Report from Study
  Country: US (occurrence: None)
  Receive Date: 20240718
  Receipt Date: 20240718
  Transmission Date: 20241016
  Serious: Yes (Other)
  Sender: ASTRAZENECA
  Company Number: 2020SF73321

PATIENT
  Age: 20463 Day
  Sex: Female

DRUGS (1)
  1. TAGRISSO [Suspect]
     Active Substance: OSIMERTINIB
     Indication: Lung neoplasm malignant
     Route: 048
     Dates: start: 20201207

REACTIONS (16)
  - Malignant neoplasm progression [Unknown]
  - Metastases to eye [Unknown]
  - Vision blurred [Unknown]
  - Heart rate increased [Unknown]
  - Deep vein thrombosis [Unknown]
  - Rash [Unknown]
  - Contusion [Unknown]
  - Swelling [Unknown]
  - Pain [Unknown]
  - Inflammation [Unknown]
  - Systemic lupus erythematosus [Unknown]
  - Visual impairment [Unknown]
  - Brain fog [Unknown]
  - Blood glucose increased [Unknown]
  - Dehydration [Unknown]
  - Weight decreased [Unknown]

NARRATIVE: CASE EVENT DATE: 20201207
